FAERS Safety Report 5789505-9 (Version None)
Quarter: 2008Q2

REPORT INFORMATION
  Report Type: 
  Country: None (occurrence: None)
  Receive Date: 20080626
  Receipt Date: 20080107
  Transmission Date: 20081010
  Serious: No
  Sender: FDA-Public Use
  Company Number: US-ASTRAZENECA-2008UW00467

PATIENT
  Age: 49 Month
  Sex: Female
  Weight: 17.1 kg

DRUGS (12)
  1. PULMICORT RESPULES [Suspect]
     Indication: OESOPHAGEAL DISORDER
     Dosage: 0.5 MG/2 ML TWICE DAILY
     Route: 055
     Dates: start: 20080101
  2. TACROLIMUS [Concomitant]
  3. IMURAN [Concomitant]
  4. PREDNISOLONE [Concomitant]
  5. ASPIRIN [Concomitant]
  6. ZYRTEC [Concomitant]
  7. HYDROXYZ [Concomitant]
  8. VITAMINS [Concomitant]
  9. AQUAFOR [Concomitant]
  10. VASOLIN [Concomitant]
  11. MUPIROCINE [Concomitant]
  12. PROTOPIC [Concomitant]

REACTIONS (9)
  - CONJUNCTIVITIS [None]
  - ECZEMA [None]
  - FEMUR FRACTURE [None]
  - INCREASED APPETITE [None]
  - NAUSEA [None]
  - PSYCHOMOTOR HYPERACTIVITY [None]
  - SKIN DISORDER [None]
  - THROAT IRRITATION [None]
  - VOMITING [None]
